FAERS Safety Report 6657740-3 (Version None)
Quarter: 2010Q1

REPORT INFORMATION
  Report Type: 
  Country: None (occurrence: None)
  Receive Date: 20100330
  Receipt Date: 20090427
  Transmission Date: 20100710
  Serious: No
  Sender: FDA-Public Use
  Company Number: US-TYCO HEALTHCARE/MALLINCKRODT-T200900932

PATIENT
  Sex: Male

DRUGS (1)
  1. METHADOSE [Suspect]

REACTIONS (2)
  - AGGRESSION [None]
  - PERSONALITY CHANGE [None]
